FAERS Safety Report 10255620 (Version 1)
Quarter: 2014Q2

REPORT INFORMATION
  Report Type: Spontaneous
  Country: DE (occurrence: None)
  Receive Date: 20140620
  Receipt Date: 20140620
  Transmission Date: 20141212
  Serious: Yes (Hospitalization)
  Sender: FDA-Public Use
  Company Number: AUR-APL-2014-06511

PATIENT
  Age: 80 Year
  Sex: Female
  Weight: 93 kg

DRUGS (9)
  1. RAMIPRIL [Suspect]
     Indication: HYPERTENSION
     Dosage: HALF TABLET OF 10, IN THE MORNING
     Route: 048
     Dates: start: 200911
  2. RAMIPRIL [Suspect]
     Indication: ATRIAL FIBRILLATION
     Dosage: HALF TABLET OF 10, IN THE MORNING
     Route: 048
     Dates: start: 200911
  3. ELIQUIS (APIXABAN) [Suspect]
     Indication: CEREBROVASCULAR ACCIDENT PROPHYLAXIS
     Route: 048
     Dates: start: 201311, end: 201403
  4. CONCOR PLUS [Suspect]
     Indication: HYPERTENSION
     Dosage: ONE IN THE MORNING
     Route: 048
     Dates: start: 201003
  5. ALLOPURINOL (ALLOPURINOL) [Suspect]
     Indication: HYPERURICAEMIA
     Dosage: IN THE MORNING
     Dates: start: 201005
  6. L-THYROXINE /00068001/ (LEVOTHYROXINE) [Concomitant]
  7. SYMBICORT (BUDESONIDE, FORMOTEROL FUMARATE) [Concomitant]
  8. SALBUTAMOL (SALBUTAMOL) [Concomitant]
  9. ZOLPIDEM (ZOLPIDEM) [Concomitant]

REACTIONS (2)
  - Cholelithiasis [None]
  - Cholecystectomy [None]
